FAERS Safety Report 7423823-3 (Version None)
Quarter: 2011Q2

REPORT INFORMATION
  Report Type: 
  Country: None (occurrence: None)
  Receive Date: 20110419
  Receipt Date: 20110406
  Transmission Date: 20111010
  Serious: Yes (Disabling)
  Sender: FDA-Public Use
  Company Number: PHHY2011SE28391

PATIENT
  Sex: Male

DRUGS (1)
  1. AFINITOR [Suspect]
     Dosage: 5 MG, QD

REACTIONS (1)
  - AZOOSPERMIA [None]
